FAERS Safety Report 12298441 (Version 1)
Quarter: 2016Q2

REPORT INFORMATION
  Report Type: Other
  Country: US (occurrence: US)
  Receive Date: 20160424
  Receipt Date: 20160424
  Transmission Date: 20160815
  Serious: Yes (Death, Hospitalization)
  Sender: FDA-Public Use
  Company Number: US-BRECKENRIDGE PHARMACEUTICAL, INC.-1050937

PATIENT

DRUGS (1)
  1. DULOXETINE. [Suspect]
     Active Substance: DULOXETINE

REACTIONS (5)
  - Tachypnoea [Fatal]
  - Acute kidney injury [Fatal]
  - Pneumonia [Fatal]
  - Cardio-respiratory arrest [Fatal]
  - Metabolic acidosis [Fatal]
